FAERS Safety Report 14053723 (Version 1)
Quarter: 2017Q4

REPORT INFORMATION
  Report Type: Spontaneous
  Country: FR (occurrence: FR)
  Receive Date: 20171006
  Receipt Date: 20171006
  Transmission Date: 20180321
  Serious: Yes (Other)
  Sender: FDA-Public Use
  Company Number: PHHY2017FR143729

PATIENT
  Age: 5 Year
  Sex: Male
  Weight: 17 kg

DRUGS (7)
  1. CERTICAN [Suspect]
     Active Substance: EVEROLIMUS
     Indication: RENAL TRANSPLANT
     Dosage: 4 DF (1 MG), BID (MORNING AND EVENING)
     Route: 048
     Dates: start: 20170719, end: 20170726
  2. CERTICAN [Suspect]
     Active Substance: EVEROLIMUS
     Dosage: 4 DF (1 MG), BID (MORNING AND EVENING)
     Route: 048
     Dates: start: 20170806, end: 201708
  3. CERTICAN [Suspect]
     Active Substance: EVEROLIMUS
     Indication: PROPHYLAXIS AGAINST TRANSPLANT REJECTION
     Dosage: 3 DF (0.75 MG), BID (MORNING AND EVENING)
     Route: 048
     Dates: start: 20170727, end: 20170805
  4. CORTANCYL [Concomitant]
     Active Substance: PREDNISONE
     Indication: PRODUCT USED FOR UNKNOWN INDICATION
     Dosage: 5 MG, UNK
     Route: 065
  5. CERTICAN [Suspect]
     Active Substance: EVEROLIMUS
     Dosage: 3 DF (0.75 MG), BID (MORNING AND EVENING)
     Route: 048
     Dates: start: 201708, end: 20170914
  6. CELLCEPT [Concomitant]
     Active Substance: MYCOPHENOLATE MOFETIL\MYCOPHENOLATE MOFETIL HYDROCHLORIDE
     Indication: PRODUCT USED FOR UNKNOWN INDICATION
     Dosage: UNK
     Route: 048
  7. FLIXOTIDE [Concomitant]
     Active Substance: FLUTICASONE PROPIONATE
     Indication: PRODUCT USED FOR UNKNOWN INDICATION
     Dosage: 125 MG/DOSE, UNK
     Route: 055

REACTIONS (3)
  - Mucosal dryness [Not Recovered/Not Resolved]
  - Epistaxis [Not Recovered/Not Resolved]
  - Stomatitis [Recovered/Resolved]

NARRATIVE: CASE EVENT DATE: 20170726
